FAERS Safety Report 9806376 (Version 2)
Quarter: 2014Q1

REPORT INFORMATION
  Report Type: Spontaneous
  Country: GB (occurrence: None)
  Receive Date: 20140107
  Receipt Date: 20140129
  Transmission Date: 20141002
  Serious: Yes (Other)
  Sender: FDA-Public Use
  Company Number: GB-DEXPHARM-20131186

PATIENT
  Age: 78 Year
  Sex: Female

DRUGS (8)
  1. DEXDOR [Suspect]
  2. LANSOPRAZOLE [Concomitant]
  3. NORADRENALINE [Concomitant]
  4. PARACETAMOL [Concomitant]
  5. PERINDOPRIL [Concomitant]
  6. PROPOFOL [Concomitant]
  7. REMIFENTANIL [Concomitant]
  8. RIVAROXABAN [Concomitant]

REACTIONS (4)
  - Alanine aminotransferase increased [None]
  - Blood bilirubin increased [None]
  - Drug interaction [None]
  - Aspartate aminotransferase increased [None]
